FAERS Safety Report 20827533 (Version 1)
Quarter: 2022Q2

REPORT INFORMATION
  Report Type: Spontaneous
  Country: US (occurrence: None)
  Receive Date: 20220513
  Receipt Date: 20220513
  Transmission Date: 20220721
  Serious: No
  Sender: FDA-Public Use
  Company Number: None

PATIENT
  Sex: Female

DRUGS (2)
  1. GLATIRAMER ACETATE [Suspect]
     Active Substance: GLATIRAMER ACETATE
     Indication: Multiple sclerosis
     Dosage: FREQUENCY : 3 TIMES A WEEK;?
     Route: 058
     Dates: start: 202202
  2. WHISPERJECT AUTOINJECTOR [Concomitant]
     Indication: Multiple sclerosis
     Dates: start: 202202

REACTIONS (3)
  - Musculoskeletal disorder [None]
  - Arthralgia [None]
  - Tendonitis [None]
